FAERS Safety Report 6230171-6 (Version None)
Quarter: 2009Q2

REPORT INFORMATION
  Report Type: 
  Country: None (occurrence: None)
  Receive Date: 20090615
  Receipt Date: 20090608
  Transmission Date: 20091009
  Serious: Yes (Hospitalization)
  Sender: FDA-Public Use
  Company Number: PHHO2009JP07170

PATIENT
  Sex: Male
  Weight: 72 kg

DRUGS (14)
  1. NEORAL [Suspect]
     Indication: RENAL TRANSPLANT
     Dosage: UNK
     Route: 048
     Dates: start: 20090322
  2. NEORAL [Suspect]
     Dosage: 200 MG DAILY
     Dates: start: 20090520
  3. MYCOPHENOLATE MOFETIL [Suspect]
     Indication: RENAL TRANSPLANT
     Dosage: UNK
     Route: 048
     Dates: start: 20090326
  4. PREDONINE [Suspect]
     Indication: RENAL TRANSPLANT
     Dosage: 5 MG DAILY
     Route: 048
     Dates: start: 20090515
  5. ALLOID [Concomitant]
     Indication: GASTRITIS PROPHYLAXIS
     Dosage: UNK
     Dates: start: 20090327
  6. AMLODIPINE [Concomitant]
     Indication: HYPERTENSION
     Dosage: UNK
     Dates: start: 20090422
  7. CARDENALIN [Concomitant]
     Indication: HYPERTENSION
     Dosage: UNK
     Dates: start: 20090514
  8. ARTIST [Concomitant]
     Indication: HYPERTENSION
     Dosage: UNK
     Dates: start: 20090508
  9. SIGMART [Concomitant]
     Indication: ANGINA PECTORIS
     Dosage: UNK
     Dates: start: 20090329
  10. NITRODERM [Concomitant]
     Indication: ANGINA PECTORIS
     Dosage: UNK
     Dates: start: 20090330
  11. ZYLORIC [Concomitant]
     Indication: HYPERURICAEMIA
     Dosage: UNK
     Dates: start: 20090522
  12. BAKTAR [Concomitant]
  13. PARIET [Concomitant]
  14. ASPIRIN [Concomitant]

REACTIONS (2)
  - CYTOMEGALOVIRUS INFECTION [None]
  - PYREXIA [None]
